FAERS Safety Report 5994930-7 (Version None)
Quarter: 2008Q4

REPORT INFORMATION
  Report Type: 
  Country: None (occurrence: None)
  Receive Date: 20081212
  Receipt Date: 20080917
  Transmission Date: 20090506
  Serious: No
  Sender: FDA-Public Use
  Company Number: US-ABBOTT-08P-163-0477029-00

PATIENT
  Sex: Male
  Weight: 99.88 kg

DRUGS (3)
  1. HUMIRA [Suspect]
     Indication: BEHCET'S SYNDROME
     Route: 050
     Dates: start: 20080401
  2. AZATHIOPRINE [Concomitant]
     Indication: BEHCET'S SYNDROME
     Route: 048
     Dates: start: 20080201
  3. ESCITALOPRAM OXALATE [Concomitant]
     Indication: DEPRESSION
     Route: 048
     Dates: start: 20071001

REACTIONS (2)
  - DIARRHOEA [None]
  - STRESS [None]
